FAERS Safety Report 19889075 (Version 1)
Quarter: 2021Q3

REPORT INFORMATION
  Report Type: Spontaneous
  Country: US (occurrence: US)
  Receive Date: 20210928
  Receipt Date: 20210928
  Transmission Date: 20211014
  Serious: Yes (Disabling)
  Sender: FDA-Public Use
  Company Number: None

PATIENT
  Sex: Female
  Weight: 53.52 kg

DRUGS (4)
  1. MIRENA [Suspect]
     Active Substance: LEVONORGESTREL
  2. COD LIVER OIL [Concomitant]
     Active Substance: COD LIVER OIL
  3. ZINC. [Concomitant]
     Active Substance: ZINC
  4. VITAMIN SUPER B COMPLEX [Concomitant]

REACTIONS (3)
  - Tinnitus [None]
  - Vision blurred [None]
  - Diplopia [None]

NARRATIVE: CASE EVENT DATE: 20210820
